FAERS Safety Report 24064894 (Version 1)
Quarter: 2024Q3

REPORT INFORMATION
  Report Type: Spontaneous
  Country: GB (occurrence: GB)
  Receive Date: 20240709
  Receipt Date: 20240709
  Transmission Date: 20241016
  Serious: Yes (Hospitalization, Other)
  Sender: BRISTOL MYERS SQUIBB
  Company Number: None

PATIENT
  Age: 64 Year
  Sex: Male

DRUGS (1)
  1. OPDIVO [Suspect]
     Active Substance: NIVOLUMAB
     Indication: Head and neck cancer
     Dosage: 240MG/100ML - GIVE ONE OF THESE INTRAVENOUSLY OVER 30 MINUTES, AS DIRECTED.
     Route: 042

REACTIONS (1)
  - Klebsiella bacteraemia [Unknown]

NARRATIVE: CASE EVENT DATE: 20240704
